FAERS Safety Report 19204145 (Version 1)
Quarter: 2021Q2

REPORT INFORMATION
  Report Type: Report from Study
  Country: DE (occurrence: DE)
  Receive Date: 20210503
  Receipt Date: 20210503
  Transmission Date: 20210717
  Serious: Yes (Hospitalization)
  Sender: FDA-Public Use
  Company Number: DE-ROCHE-2819363

PATIENT
  Age: 66 Year
  Sex: Male
  Weight: 85 kg

DRUGS (4)
  1. RITUXIMAB. [Suspect]
     Active Substance: RITUXIMAB
     Indication: WALDENSTROM^S MACROGLOBULINAEMIA
     Route: 042
     Dates: start: 20200826, end: 20200826
  2. RITUXIMAB. [Suspect]
     Active Substance: RITUXIMAB
     Indication: WALDENSTROM^S MACROGLOBULINAEMIA
     Dosage: LAST ADMINISTRATION PRIOR TO REPORTED SAE: 10/FEB/2021
     Route: 058
     Dates: start: 20200923
  3. BORTEZOMIB. [Suspect]
     Active Substance: BORTEZOMIB
     Indication: WALDENSTROM^S MACROGLOBULINAEMIA
     Dosage: LAST ADMINISTRATION OF BORTEZOMIB PRIOR TO REPORTED EVENT WAS ON 27/JAN/2021
     Route: 058
     Dates: start: 20200826, end: 20200827
  4. IBRUTINIB [Suspect]
     Active Substance: IBRUTINIB
     Indication: WALDENSTROM^S MACROGLOBULINAEMIA
     Dosage: LAST ADMINISTRATION OF IBRUTINIB PRIOR TO REPORTED EVENT WAS ON 25/MAR/2021.
     Route: 048
     Dates: start: 20200826

REACTIONS (1)
  - Oral herpes [Recovered/Resolved]

NARRATIVE: CASE EVENT DATE: 20210325
